FAERS Safety Report 26085962 (Version 1)
Quarter: 2025Q4

REPORT INFORMATION
  Report Type: Report from Study
  Country: CN (occurrence: CN)
  Receive Date: 20251125
  Receipt Date: 20251125
  Transmission Date: 20260118
  Serious: Yes (Other)
  Sender: ABBVIE
  Company Number: CN-ABBVIE-6559132

PATIENT
  Sex: Female

DRUGS (3)
  1. CRINONE [Suspect]
     Active Substance: PROGESTERONE
     Indication: Endometrial disorder
     Route: 067
  2. DUPHASTON [Suspect]
     Active Substance: DYDROGESTERONE
     Indication: Endometrial disorder
     Route: 048
  3. ESTRADIOL VALERATE [Suspect]
     Active Substance: ESTRADIOL VALERATE
     Indication: Endometrial disorder
     Route: 048

REACTIONS (2)
  - Abortion spontaneous [Unknown]
  - Maternal exposure during pregnancy [Unknown]
